FAERS Safety Report 5875710-X (Version None)
Quarter: 2008Q3

REPORT INFORMATION
  Report Type: 
  Country: None (occurrence: None)
  Receive Date: 20080905
  Receipt Date: 20080829
  Transmission Date: 20090109
  Serious: Yes (Other)
  Sender: FDA-Public Use
  Company Number: 1000000738

PATIENT
  Sex: Male

DRUGS (2)
  1. LEXAPRO [Suspect]
  2. ALCOHOL [Suspect]

REACTIONS (1)
  - BLOOD ALCOHOL INCREASED [None]
